FAERS Safety Report 15544547 (Version 1)
Quarter: 2018Q4

REPORT INFORMATION
  Report Type: Spontaneous
  Country: GB (occurrence: GB)
  Receive Date: 20181024
  Receipt Date: 20181024
  Transmission Date: 20190205
  Serious: Yes (Other)
  Sender: FDA-Public Use
  Company Number: GB-ACCORD-073714

PATIENT
  Age: 68 Year
  Sex: Female
  Weight: 181 kg

DRUGS (6)
  1. PARACETAMOL [Concomitant]
     Active Substance: ACETAMINOPHEN
     Dosage: TAKE 1 OR 2 4 TIMES/DAY.
     Dates: start: 20161011
  2. DICLOFENACDIETHYLAMMONIUM [Concomitant]
     Dates: start: 20160525
  3. SENNA [Concomitant]
     Active Substance: SENNA LEAF\SENNOSIDES\SENNOSIDES A AND B
     Dosage: 5-10MLS  AT NIGHT
     Dates: start: 20150310
  4. CLOPIDOGREL [Suspect]
     Active Substance: CLOPIDOGREL BISULFATE
     Indication: PRODUCT USED FOR UNKNOWN INDICATION
     Dates: start: 20170908
  5. AMOROLFINE [Concomitant]
     Active Substance: AMOROLFINE
     Dates: start: 20170615
  6. RISPERIDONE. [Concomitant]
     Active Substance: RISPERIDONE
     Dates: start: 20150205

REACTIONS (1)
  - Dyspnoea [Unknown]

NARRATIVE: CASE EVENT DATE: 20171212
